FAERS Safety Report 21218706 (Version 3)
Quarter: 2022Q3

REPORT INFORMATION
  Report Type: Spontaneous
  Country: US (occurrence: US)
  Receive Date: 20220816
  Receipt Date: 20220831
  Transmission Date: 20221027
  Serious: Yes (Death, Other)
  Sender: FDA-Public Use
  Company Number: US-PFIZER INC-202200592589

PATIENT
  Age: 85 Year
  Sex: Female

DRUGS (4)
  1. TIKOSYN [Suspect]
     Active Substance: DOFETILIDE
     Dosage: 1 DF, 2X/DAY
     Route: 048
     Dates: start: 20180131
  2. TIKOSYN [Suspect]
     Active Substance: DOFETILIDE
     Dosage: UNK
  3. DOFETILIDE [Suspect]
     Active Substance: DOFETILIDE
     Dosage: UNK
  4. XANAX [Suspect]
     Active Substance: ALPRAZOLAM
     Dosage: 0.25 MG
     Route: 048
     Dates: start: 20220102

REACTIONS (1)
  - Death [Fatal]
